FAERS Safety Report 19490274 (Version 3)
Quarter: 2021Q3

REPORT INFORMATION
  Report Type: Spontaneous
  Country: US (occurrence: US)
  Receive Date: 20210705
  Receipt Date: 20210901
  Transmission Date: 20211014
  Serious: No
  Sender: FDA-Public Use
  Company Number: US-BEH-2021133602

PATIENT
  Age: 37 Year
  Sex: Male

DRUGS (5)
  1. ZYRTEC [Suspect]
     Active Substance: CETIRIZINE HYDROCHLORIDE
     Indication: PRURITUS
  2. HIZENTRA [Suspect]
     Active Substance: HUMAN IMMUNOGLOBULIN G
     Indication: HUMORAL IMMUNE DEFECT
     Dosage: 10 GRAM, QW
     Route: 058
     Dates: start: 20210611
  3. ACETAMINOPHEN BORYUNG [Concomitant]
     Indication: INFUSION RELATED REACTION
  4. ZYRTEC [Suspect]
     Active Substance: CETIRIZINE HYDROCHLORIDE
     Indication: PRURITUS
  5. ACETAMINOPHEN BORYUNG [Concomitant]
     Indication: PREMEDICATION

REACTIONS (11)
  - Pain [Unknown]
  - Pruritus [Unknown]
  - Headache [Unknown]
  - Dry mouth [Unknown]
  - Headache [Unknown]
  - Dry throat [Unknown]
  - Somnolence [Unknown]
  - Poor quality sleep [Unknown]
  - Infusion site injury [Unknown]
  - Pruritus [Unknown]
  - Hyperaesthesia teeth [Unknown]

NARRATIVE: CASE EVENT DATE: 202106
